FAERS Safety Report 5959478-4 (Version None)
Quarter: 2008Q4

REPORT INFORMATION
  Report Type: 
  Country: None (occurrence: None)
  Receive Date: 20081120
  Receipt Date: 20081111
  Transmission Date: 20090506
  Serious: Yes (Hospitalization)
  Sender: FDA-Public Use
  Company Number: US-BIOGENIDEC-2008BI016696

PATIENT
  Age: 55 Year
  Sex: Female

DRUGS (2)
  1. AVONEX [Suspect]
     Indication: MULTIPLE SCLEROSIS
     Route: 030
     Dates: start: 20030916, end: 20040501
  2. AVONEX [Suspect]
     Route: 030
     Dates: start: 20040501, end: 20080628

REACTIONS (4)
  - ABDOMINAL PAIN LOWER [None]
  - CHEST PAIN [None]
  - PANCREATITIS [None]
  - PELVIC FLUID COLLECTION [None]
